FAERS Safety Report 14431316 (Version 1)
Quarter: 2018Q1

REPORT INFORMATION
  Report Type: Spontaneous
  Country: US (occurrence: US)
  Receive Date: 20180124
  Receipt Date: 20180124
  Transmission Date: 20180509
  Serious: No
  Sender: FDA-Public Use
  Company Number: US-PFIZER INC-2018030822

PATIENT
  Age: 48 Year
  Sex: Female
  Weight: 86.18 kg

DRUGS (4)
  1. GABAPENTIN. [Suspect]
     Active Substance: GABAPENTIN
     Indication: SCIATICA
     Dosage: UNK, 2X/DAY
  2. CLARADIN [Concomitant]
     Indication: SINUSITIS
     Dosage: 50MCG; 2 SPRAYS IN EACH NOSTRIL ONCE PER DAY
     Route: 045
  3. VITAMIN B12 [Concomitant]
     Active Substance: CYANOCOBALAMIN
     Dosage: 500 MG, 1X/DAY
     Route: 048
  4. GENVOYA [Concomitant]
     Active Substance: COBICISTAT\ELVITEGRAVIR\EMTRICITABINE\TENOFOVIR ALAFENAMIDE FUMARATE
     Indication: HIV INFECTION
     Dosage: UNK

REACTIONS (4)
  - Product use in unapproved indication [Unknown]
  - Nasopharyngitis [Unknown]
  - Euphoric mood [Unknown]
  - Somnolence [Unknown]
